FAERS Safety Report 8824639 (Version 2)
Quarter: 2012Q4

REPORT INFORMATION
  Report Type: 
  Country: CL (occurrence: CL)
  Receive Date: 20121004
  Receipt Date: 20121008
  Transmission Date: 20130627
  Serious: Yes (Hospitalization)
  Sender: FDA-Public Use
  Company Number: PHHY2012CL084940

PATIENT
  Age: 28 Year
  Sex: Male

DRUGS (3)
  1. LEPONEX [Suspect]
     Dosage: 300 mg, per day
     Dates: start: 20120102
  2. VALPROIC ACID [Concomitant]
     Dosage: UNK UKN, UNK
  3. ARIPIPRAZOLE [Concomitant]
     Dosage: UNK UKN, UNK

REACTIONS (2)
  - Schizophrenia [Unknown]
  - Tachycardia [Unknown]
